FAERS Safety Report 20290850 (Version 1)
Quarter: 2022Q1

REPORT INFORMATION
  Report Type: Spontaneous
  Country: PL (occurrence: PL)
  Receive Date: 20220104
  Receipt Date: 20220104
  Transmission Date: 20220423
  Serious: Yes (Other)
  Sender: FDA-Public Use
  Company Number: PL-TEVA-2021-PL-1994928

PATIENT
  Age: 83 Year
  Sex: Female

DRUGS (32)
  1. ATORVASTATIN [Suspect]
     Active Substance: ATORVASTATIN
     Indication: Product used for unknown indication
     Dosage: 20 MILLIGRAM DAILY;
     Route: 065
  2. RAMIPRIL [Suspect]
     Active Substance: RAMIPRIL
     Indication: Cardiac failure
     Dosage: 5 MILLIGRAM DAILY;
     Route: 065
  3. ACETAMINOPHEN [Suspect]
     Active Substance: ACETAMINOPHEN
     Indication: Product used for unknown indication
     Dosage: 1000 MILLIGRAM DAILY;
     Route: 065
  4. ACETAMINOPHEN [Suspect]
     Active Substance: ACETAMINOPHEN
     Dosage: 500 MILLIGRAM DAILY;
     Route: 065
  5. HYDROXYZINE [Suspect]
     Active Substance: HYDROXYZINE HYDROCHLORIDE
     Indication: Product used for unknown indication
     Dosage: 40 MILLIGRAM DAILY;
     Route: 065
  6. OMEPRAZOLE [Suspect]
     Active Substance: OMEPRAZOLE
     Indication: Product used for unknown indication
     Dosage: 40 MILLIGRAM DAILY;
     Route: 065
  7. ZOLPIDEM [Suspect]
     Active Substance: ZOLPIDEM TARTRATE
     Indication: Product used for unknown indication
     Dosage: 10 MILLIGRAM DAILY;
     Route: 065
  8. BETAHISTINE [Suspect]
     Active Substance: BETAHISTINE
     Indication: Product used for unknown indication
     Dosage: 24 MILLIGRAM DAILY;
     Route: 065
  9. METOCLOPRAMIDE [Suspect]
     Active Substance: METOCLOPRAMIDE
     Indication: Constipation
     Dosage: 2 DOSAGE FORMS DAILY;
     Route: 065
  10. CITALOPRAM [Suspect]
     Active Substance: CITALOPRAM HYDROBROMIDE
     Indication: Product used for unknown indication
     Dosage: 40 MILLIGRAM DAILY;
     Route: 065
  11. GLICLAZIDE [Suspect]
     Active Substance: GLICLAZIDE
     Indication: Product used for unknown indication
     Dosage: 180 MILLIGRAM DAILY;
     Route: 065
  12. TRAMADOL [Suspect]
     Active Substance: TRAMADOL
     Indication: Pain
     Dosage: 50 MILLIGRAM DAILY;
     Route: 065
  13. TRAMADOL [Suspect]
     Active Substance: TRAMADOL
     Dosage: 100 MILLIGRAM DAILY;
     Route: 065
  14. ALBUTEROL [Suspect]
     Active Substance: ALBUTEROL
     Indication: Product used for unknown indication
     Dosage: 100 MICROGRAM DAILY;
     Route: 065
  15. POTASSIUM CHLORIDE [Suspect]
     Active Substance: POTASSIUM CHLORIDE
     Indication: Product used for unknown indication
     Dosage: 1 DF EVERY 2 DAYS/391 MG K+
     Route: 065
  16. HYDROCHLOROTHIAZIDE [Suspect]
     Active Substance: HYDROCHLOROTHIAZIDE
     Indication: Product used for unknown indication
     Dosage: 25 MILLIGRAM DAILY;
     Route: 065
  17. FUROSEMIDE [Suspect]
     Active Substance: FUROSEMIDE
     Indication: Product used for unknown indication
     Route: 065
  18. LEVOTHYROXINE [Suspect]
     Active Substance: LEVOTHYROXINE
     Indication: Product used for unknown indication
     Dosage: 100 MICROGRAM DAILY;
     Route: 065
  19. ISOSORBIDE MONONITRATE [Suspect]
     Active Substance: ISOSORBIDE MONONITRATE
     Indication: Product used for unknown indication
     Dosage: 50 MG, AD HOC, USUALLY,1-2 TABLETS A DAY
     Route: 065
  20. DABIGATRAN [Suspect]
     Active Substance: DABIGATRAN
     Indication: Product used for unknown indication
     Dosage: 220 MILLIGRAM DAILY;
     Route: 065
  21. DABIGATRAN [Suspect]
     Active Substance: DABIGATRAN
     Dosage: 220 MILLIGRAM DAILY;
     Route: 065
  22. SPIRONOLACTONE [Suspect]
     Active Substance: SPIRONOLACTONE
     Indication: Product used for unknown indication
     Dosage: 100 MILLIGRAM DAILY;
     Route: 065
  23. METOPROLOL [Suspect]
     Active Substance: METOPROLOL
     Indication: Hypertension
     Dosage: 100 MILLIGRAM DAILY;
     Route: 065
  24. METOPROLOL [Suspect]
     Active Substance: METOPROLOL
     Dosage: 100 MILLIGRAM DAILY;
     Route: 065
  25. ALLOPURINOL [Suspect]
     Active Substance: ALLOPURINOL
     Indication: Product used for unknown indication
     Dosage: 100 MILLIGRAM DAILY;
     Route: 065
  26. ALLOPURINOL [Suspect]
     Active Substance: ALLOPURINOL
     Dosage: 100 MILLIGRAM DAILY;
     Route: 065
  27. ALPRAZOLAM [Suspect]
     Active Substance: ALPRAZOLAM
     Indication: Product used for unknown indication
     Dosage: 2 DOSAGE FORMS DAILY; 0.5 MG
     Route: 065
  28. NIKETHAMIDE [Suspect]
     Active Substance: NIKETHAMIDE
     Indication: Product used for unknown indication
     Dosage: UNK 1,5 + 125 MG, AD HOC
     Route: 065
  29. VORTIOXETINE [Concomitant]
     Active Substance: VORTIOXETINE
     Indication: Product used for unknown indication
     Dosage: 10 MILLIGRAM DAILY;
     Route: 065
  30. TORSEMIDE [Concomitant]
     Active Substance: TORSEMIDE
     Indication: Product used for unknown indication
     Dosage: 5 MILLIGRAM DAILY;
     Route: 065
  31. QUETIAPINE [Concomitant]
     Active Substance: QUETIAPINE
     Indication: Product used for unknown indication
     Dosage: 25 MILLIGRAM DAILY;
     Route: 065
  32. METFORMIN [Concomitant]
     Active Substance: METFORMIN HYDROCHLORIDE
     Indication: Type 2 diabetes mellitus
     Route: 065

REACTIONS (7)
  - Dementia [Unknown]
  - Syncope [Unknown]
  - Hypoglycaemia [Unknown]
  - Parkinsonism [Unknown]
  - Hypotension [Unknown]
  - Osteoporosis [Unknown]
  - Fall [Unknown]
